FAERS Safety Report 19480666 (Version 1)
Quarter: 2021Q3

REPORT INFORMATION
  Report Type: Spontaneous
  Country: PT (occurrence: PT)
  Receive Date: 20210701
  Receipt Date: 20210701
  Transmission Date: 20211014
  Serious: Yes (Hospitalization, Other)
  Sender: FDA-Public Use
  Company Number: PT-AMGEN-PRTNI2021098856

PATIENT

DRUGS (25)
  1. DIAZEPAM. [Concomitant]
     Active Substance: DIAZEPAM
     Dosage: ONGOING = CHECKED
  2. NAPROXENO [NAPROXEN] [Concomitant]
     Active Substance: NAPROXEN
     Dosage: ONGOING = CHECKED
     Dates: start: 20180706
  3. ROSUVASTATIN. [Concomitant]
     Active Substance: ROSUVASTATIN
     Dosage: ONGOING = CHECKED
  4. THIOCOLCHICOSIDE [Concomitant]
     Active Substance: THIOCOLCHICOSIDE
     Dosage: ONGOING = CHECKED
     Dates: start: 20180706
  5. PARACETAMOL [Concomitant]
     Active Substance: ACETAMINOPHEN
     Dosage: ONGOING = CHECKED
     Dates: start: 20180108
  6. ESCITALOPRAM [Concomitant]
     Active Substance: ESCITALOPRAM OXALATE
     Dosage: ONGOING = CHECKED
  7. ENOXAPARIN [Concomitant]
     Active Substance: ENOXAPARIN
     Dosage: ONGOING = CHECKED
  8. MONTELUKAST [Concomitant]
     Active Substance: MONTELUKAST SODIUM
     Dosage: UNK
  9. THIOCOLCHICOSIDE [Concomitant]
     Active Substance: THIOCOLCHICOSIDE
     Dosage: ONGOING = CHECKED
     Dates: start: 20180108
  10. PERTUZUMAB. [Suspect]
     Active Substance: PERTUZUMAB
     Indication: BREAST CANCER
     Dosage: 420 MG EVERY 3 WEEKS; LAST DOSE OF PERTUZUMAB PRIOR TO ONSET OF EVENT ON 30 JAN 2018.
     Route: 042
     Dates: start: 20171024
  11. BUDESONIDE. [Concomitant]
     Active Substance: BUDESONIDE
     Dosage: ONGOING = CHECKED
  12. OMEPRAZOL [OMEPRAZOLE] [Concomitant]
     Active Substance: OMEPRAZOLE
     Dosage: ONGOING = CHECKED
  13. LISINOPRIL. [Concomitant]
     Active Substance: LISINOPRIL
     Dosage: ONGOING = CHECKED
  14. LETROZOLE. [Suspect]
     Active Substance: LETROZOLE
     Indication: BREAST CANCER
     Dosage: 2.5 MG, QD
     Route: 048
     Dates: start: 20180417
  15. DOCETAXEL. [Suspect]
     Active Substance: DOCETAXEL
     Indication: BREAST CANCER
     Dosage: EVERY 3 WEEKS; LAST DOSE OF PERTUZUMAB PRIOR TO ONSET OF EVENT ON 30 JAN 2018.
     Route: 042
     Dates: start: 20171024
  16. PARACETAMOL [Concomitant]
     Active Substance: ACETAMINOPHEN
     Dosage: ONGOING = CHECKED
  17. DENOSUMAB [Suspect]
     Active Substance: DENOSUMAB
     Indication: BREAST CANCER
     Dosage: 120 MG EVERY 3 WEEKS
     Route: 058
     Dates: start: 20180509
  18. ZOLPIDEM [Concomitant]
     Active Substance: ZOLPIDEM TARTRATE
     Dosage: ONGOING = CHECKED
  19. MORFINE [Concomitant]
     Active Substance: MORPHINE
     Dosage: ONGOING = CHECKED
  20. NEUTRAL INSULIN [INSULIN] [Concomitant]
     Dosage: ONGOING = CHECKED
  21. METFORMIN [Concomitant]
     Active Substance: METFORMIN HYDROCHLORIDE
     Dosage: ONGOING = CHECKED
  22. BILASTINE [Concomitant]
     Active Substance: BILASTINE
     Dosage: ONGOING = CHECKED
  23. TRASTUZUMAB. [Suspect]
     Active Substance: TRASTUZUMAB
     Indication: BREAST CANCER
     Dosage: 600 MG EVERY 3 WEEKS
     Route: 042
     Dates: start: 20171024
  24. LOPERAMIDE [Concomitant]
     Active Substance: LOPERAMIDE
     Dosage: ONGOING = NOT CHECKED
     Dates: start: 20180104, end: 20180615
  25. FORMOTEROL [Concomitant]
     Active Substance: FORMOTEROL
     Dosage: ONGOING = CHECKED

REACTIONS (2)
  - Pyelonephritis [Recovered/Resolved]
  - Off label use [Unknown]

NARRATIVE: CASE EVENT DATE: 20180714
